FAERS Safety Report 7944118-5 (Version None)
Quarter: 2011Q4

REPORT INFORMATION
  Report Type: 
  Country: None (occurrence: None)
  Receive Date: 20111128
  Receipt Date: 20111123
  Transmission Date: 20120403
  Serious: Yes (Other)
  Sender: FDA-Public Use
  Company Number: US-ASTRAZENECA-2011SE71207

PATIENT
  Age: 59 Year
  Sex: Male

DRUGS (4)
  1. ZYVOX [Suspect]
     Indication: KLEBSIELLA INFECTION
     Route: 042
     Dates: start: 20111001, end: 20111001
  2. MEROPENEM [Suspect]
     Indication: BACTERIAL DISEASE CARRIER
     Route: 042
     Dates: start: 20111001, end: 20111001
  3. ZYVOX [Suspect]
     Indication: BACTERIAL DISEASE CARRIER
     Route: 042
     Dates: start: 20111001, end: 20111001
  4. MEROPENEM [Suspect]
     Indication: KLEBSIELLA INFECTION
     Route: 042
     Dates: start: 20111001, end: 20111001

REACTIONS (1)
  - HYPERSENSITIVITY [None]
